FAERS Safety Report 10676901 (Version 2)
Quarter: 2014Q4

REPORT INFORMATION
  Report Type: Spontaneous
  Country: JP (occurrence: JP)
  Receive Date: 20141226
  Receipt Date: 20141226
  Transmission Date: 20150529
  Serious: Yes (Hospitalization, Other)
  Sender: FDA-Public Use
  Company Number: JP-GLAXOSMITHKLINE-B0988788A

PATIENT
  Age: 32 Year
  Sex: Male

DRUGS (19)
  1. LANDSEN [Concomitant]
     Active Substance: CLONAZEPAM
     Indication: AUTONOMIC SEIZURE
     Dosage: 1 MG, BID
     Dates: start: 20120402
  2. EVAMYL [Concomitant]
     Active Substance: LORMETAZEPAM
     Indication: INSOMNIA
     Dosage: 2 MG, QD
     Dates: start: 20111203
  3. HARNAL [Concomitant]
     Active Substance: TAMSULOSIN HYDROCHLORIDE
     Indication: BENIGN PROSTATIC HYPERPLASIA
     Dosage: 0.2 MG, QD
     Dates: start: 20131210, end: 20140328
  4. HIBERNA [Concomitant]
     Active Substance: PROMETHAZINE HYDROCHLORIDE
     Indication: PARKINSONISM
     Dosage: 50 MG, QD
     Dates: start: 20120326
  5. MIYA-BM [Concomitant]
     Active Substance: CLOSTRIDIUM BUTYRICUM SPORES STRAIN M-55
     Indication: IRRITABLE BOWEL SYNDROME
     Dosage: 1 DF, TID
     Dates: start: 20120326
  6. LAMOTRIGINE. [Suspect]
     Active Substance: LAMOTRIGINE
     Indication: BIPOLAR DISORDER RELAPSE PROPHYLAXIS
     Dosage: 25 MG, QOD
     Route: 048
     Dates: start: 20140218, end: 20140303
  7. DEPAKENE [Concomitant]
     Active Substance: VALPROIC ACID
     Indication: BIPOLAR I DISORDER
     Dosage: 1200 MG, QD
     Dates: start: 20120627
  8. FLUNITRAZEPAM [Concomitant]
     Active Substance: FLUNITRAZEPAM
     Indication: INSOMNIA
     Dosage: 2 MG, QD
     Route: 048
     Dates: start: 20120326
  9. LOPEMIN [Concomitant]
     Active Substance: LOPERAMIDE HYDROCHLORIDE
     Indication: DIARRHOEA
     Dosage: 1 MG, BID
     Dates: start: 20131203, end: 20140328
  10. LAMOTRIGINE. [Suspect]
     Active Substance: LAMOTRIGINE
     Dosage: 25 MG, QD
     Route: 048
     Dates: start: 20140304, end: 20140318
  11. LIMAS [Concomitant]
     Active Substance: LITHIUM CARBONATE
     Dosage: 400 MG, BID
     Dates: start: 20140327
  12. ALESION [Concomitant]
     Active Substance: EPINASTINE HYDROCHLORIDE
     Indication: RHINITIS ALLERGIC
     Dosage: 20 MG, QD
     Dates: start: 20120621, end: 20140328
  13. LOTRIGA [Concomitant]
     Active Substance: OMEGA-3-ACID ETHYL ESTERS
  14. LAMOTRIGINE. [Suspect]
     Active Substance: LAMOTRIGINE
     Dosage: 25 MG, BID
     Route: 048
     Dates: start: 20140318, end: 20140319
  15. LIMAS [Concomitant]
     Active Substance: LITHIUM CARBONATE
     Indication: BIPOLAR I DISORDER
     Dosage: 500 MG, BID
     Dates: start: 20131210, end: 20140327
  16. IRRIBOW [Concomitant]
     Active Substance: RAMOSETRON HYDROCHLORIDE
     Indication: IRRITABLE BOWEL SYNDROME
     Dosage: 5 ?G, QD
     Dates: start: 20120731, end: 20140328
  17. SEROQUEL [Concomitant]
     Active Substance: QUETIAPINE FUMARATE
     Indication: SCHIZOPHRENIA
     Dosage: 50 MG, QD
     Route: 048
     Dates: start: 20120326, end: 20120327
  18. INDERAL [Concomitant]
     Active Substance: PROPRANOLOL HYDROCHLORIDE
     Indication: HYPERTENSION
     Dosage: 30 MG, TID
     Dates: start: 20120818
  19. LANSOPRAZOLE. [Concomitant]
     Active Substance: LANSOPRAZOLE
     Indication: GASTRIC ULCER
     Dosage: 15 MG, BID
     Dates: start: 20120326

REACTIONS (12)
  - Generalised erythema [Recovered/Resolved]
  - Rash [Recovered/Resolved]
  - Dermatitis exfoliative [Recovered/Resolved]
  - Pruritus generalised [Recovered/Resolved]
  - Urticaria [Recovered/Resolved]
  - Drug eruption [Recovered/Resolved]
  - Drug eruption [Recovered/Resolved]
  - Hyperthermia [Recovered/Resolved]
  - Pyrexia [Recovered/Resolved]
  - Hepatic function abnormal [Recovered/Resolved]
  - Drug reaction with eosinophilia and systemic symptoms [Unknown]
  - Hepatic enzyme increased [Recovered/Resolved]

NARRATIVE: CASE EVENT DATE: 201403
